FAERS Safety Report 8207313-6 (Version None)
Quarter: 2012Q1

REPORT INFORMATION
  Report Type: 
  Country: None (occurrence: None)
  Receive Date: 20120314
  Receipt Date: 20120229
  Transmission Date: 20120608
  Serious: Yes (Other)
  Sender: FDA-Public Use
  Company Number: DE-UCBSA-051870

PATIENT
  Sex: Female
  Weight: 78 kg

DRUGS (2)
  1. NEUPRO [Suspect]
     Indication: RESTLESS LEGS SYNDROME
     Dosage: UPTO 2 PATCHCES PER DAY
     Route: 062
     Dates: start: 20110112, end: 20110224
  2. NEUPRO [Suspect]
     Dosage: UPTO 6 PATCHCES PER DAY
     Route: 062
     Dates: start: 20110224, end: 20110324

REACTIONS (3)
  - EUPHORIC MOOD [None]
  - DRUG INEFFECTIVE [None]
  - DRUG DEPENDENCE [None]
